FAERS Safety Report 8632506 (Version 3)
Quarter: 2013Q1

REPORT INFORMATION
  Report Type: Report from Study
  Country: US (occurrence: US)
  Receive Date: 20120625
  Receipt Date: 20130108
  Transmission Date: 20140127
  Serious: Yes (Death, Hospitalization, Other)
  Sender: FDA-Public Use
  Company Number: US-CELGENEUS-163-21880-12051556

PATIENT
  Age: 33 Year
  Sex: Male
  Weight: 123 kg

DRUGS (5)
  1. REVLIMID [Suspect]
     Indication: ACUTE MYELOID LEUKAEMIA
     Dosage: 5 MILLIGRAM
     Route: 048
     Dates: start: 20120501, end: 20120506
  2. CASPOFUNGIN [Concomitant]
     Indication: PROPHYLAXIS
     Route: 065
  3. MAGNESIUM OXIDE [Concomitant]
     Indication: PRODUCT USED FOR UNKNOWN INDICATION
     Route: 065
  4. FLUCONAZOLE [Concomitant]
     Indication: PRODUCT USED FOR UNKNOWN INDICATION
     Route: 065
  5. ZOLPIDEM [Concomitant]
     Indication: PRODUCT USED FOR UNKNOWN INDICATION
     Route: 065

REACTIONS (39)
  - Sinusitis [Fatal]
  - Graft versus host disease [Unknown]
  - Ileus [Not Recovered/Not Resolved]
  - Small intestinal obstruction [Not Recovered/Not Resolved]
  - Large intestinal haemorrhage [Unknown]
  - Headache [Unknown]
  - Neutrophil count decreased [Recovered/Resolved]
  - Platelet count decreased [Not Recovered/Not Resolved]
  - White blood cell count decreased [Not Recovered/Not Resolved]
  - Pain [Not Recovered/Not Resolved]
  - Abdominal pain [Not Recovered/Not Resolved]
  - Diarrhoea [Not Recovered/Not Resolved]
  - Nausea [Recovering/Resolving]
  - Vomiting [Recovered/Resolved]
  - Hypotension [Not Recovered/Not Resolved]
  - Rash maculo-papular [Recovering/Resolving]
  - Dizziness [Unknown]
  - Hyperglycaemia [Not Recovered/Not Resolved]
  - Hypoalbuminaemia [Not Recovered/Not Resolved]
  - Hyponatraemia [Not Recovered/Not Resolved]
  - Alanine aminotransferase increased [Not Recovered/Not Resolved]
  - Aspartate aminotransferase increased [Not Recovered/Not Resolved]
  - Blood bilirubin increased [Not Recovered/Not Resolved]
  - Blood creatinine increased [Not Recovered/Not Resolved]
  - Weight decreased [Unknown]
  - Oesophagitis [Unknown]
  - Gastritis [Unknown]
  - Gastrooesophageal reflux disease [Unknown]
  - Stomatitis [Not Recovered/Not Resolved]
  - Sinus tachycardia [Not Recovered/Not Resolved]
  - Renal failure acute [Not Recovered/Not Resolved]
  - Somnolence [Not Recovered/Not Resolved]
  - Syncope [Unknown]
  - Hypophosphataemia [Unknown]
  - Skin infection [Not Recovered/Not Resolved]
  - Facial pain [Not Recovered/Not Resolved]
  - Eye pain [Not Recovered/Not Resolved]
  - Atrial fibrillation [Unknown]
  - Hypocalcaemia [Not Recovered/Not Resolved]
